FAERS Safety Report 4972129-0 (Version None)
Quarter: 2006Q2

REPORT INFORMATION
  Report Type: 
  Country: None (occurrence: None)
  Receive Date: 20060413
  Receipt Date: 20060404
  Transmission Date: 20061013
  Serious: Yes (Other)
  Sender: FDA-Public Use
  Company Number: PHMT2006CA01034

PATIENT
  Age: 50 Year
  Sex: Male

DRUGS (1)
  1. CLOZARIL [Suspect]
     Dosage: 375 MG PER DAY
     Route: 048
     Dates: start: 20010901

REACTIONS (3)
  - GRUNTING [None]
  - PSYCHOTIC DISORDER [None]
  - THROAT IRRITATION [None]
